FAERS Safety Report 20998304 (Version 4)
Quarter: 2022Q3

REPORT INFORMATION
  Report Type: Spontaneous
  Country: RU (occurrence: None)
  Receive Date: 20220623
  Receipt Date: 20220706
  Transmission Date: 20221027
  Serious: Yes (Life-Threatening, Hospitalization)
  Sender: FDA-Public Use
  Company Number: RU-Eisai Medical Research-EC-2022-117400

PATIENT
  Age: 2 Year
  Sex: Male
  Weight: 12 kg

DRUGS (2)
  1. FYCOMPA [Suspect]
     Active Substance: PERAMPANEL
     Indication: Accidental exposure to product by child
     Dosage: 10 TABLETS (DOSE UNKNOWN)
     Route: 048
     Dates: start: 20220619, end: 20220619
  2. INOVELON [Suspect]
     Active Substance: RUFINAMIDE
     Indication: Accidental exposure to product by child
     Dosage: 4-6 TABLETS (DOSE UNKNOWN)
     Route: 048
     Dates: start: 20220619, end: 20220619

REACTIONS (6)
  - Coma [Recovered/Resolved]
  - Somnolence [Recovered/Resolved]
  - Screaming [Recovered/Resolved]
  - Crying [Recovered/Resolved]
  - Accidental overdose [Recovered/Resolved]
  - Accidental exposure to product by child [Recovered/Resolved]

NARRATIVE: CASE EVENT DATE: 20220601
